FAERS Safety Report 6650660-X (Version None)
Quarter: 2010Q1

REPORT INFORMATION
  Report Type: 
  Country: None (occurrence: None)
  Receive Date: 20100325
  Receipt Date: 20100310
  Transmission Date: 20100710
  Serious: No
  Sender: FDA-Public Use
  Company Number: US-BIOGENIDEC-2010BI008396

PATIENT
  Sex: Female

DRUGS (2)
  1. AVONEX [Suspect]
     Indication: MULTIPLE SCLEROSIS
     Route: 030
     Dates: start: 20050404, end: 20060306
  2. AVONEX [Suspect]
     Route: 030
     Dates: start: 20080527, end: 20090311

REACTIONS (2)
  - BLISTER [None]
  - RHINORRHOEA [None]
